FAERS Safety Report 23593384 (Version 1)
Quarter: 2024Q1

REPORT INFORMATION
  Report Type: Spontaneous
  Country: KR (occurrence: KR)
  Receive Date: 20240304
  Receipt Date: 20240304
  Transmission Date: 20240409
  Serious: No
  Sender: FDA-Public Use
  Company Number: KR-WW-2024-APC-016899

PATIENT
  Sex: Female

DRUGS (1)
  1. AVODART [Suspect]
     Active Substance: DUTASTERIDE
     Indication: Alopecia
     Route: 065

REACTIONS (3)
  - Contraindicated product prescribed [Unknown]
  - Contraindicated product administered [Unknown]
  - Off label use [Unknown]
